FAERS Safety Report 9828398 (Version 1)
Quarter: 2014Q1

REPORT INFORMATION
  Report Type: Report from Study
  Country: DE (occurrence: DE)
  Receive Date: 20140117
  Receipt Date: 20140117
  Transmission Date: 20141002
  Serious: Yes (Death)
  Sender: FDA-Public Use
  Company Number: DE-PFIZER INC-2014012683

PATIENT
  Age: 71 Year
  Sex: Male

DRUGS (3)
  1. FLUMAZENIL [Suspect]
     Indication: SEDATION
     Dosage: 0.5 MG, UNK
  2. PROPOFOL [Suspect]
     Indication: SEDATION
     Dosage: 400 MG, UNK
  3. MIDAZOLAM [Suspect]
     Indication: SEDATION
     Dosage: 2.5 MG, UNK

REACTIONS (2)
  - Hypotension [Fatal]
  - Respiratory failure [Fatal]
